FAERS Safety Report 8199292-5 (Version None)
Quarter: 2012Q1

REPORT INFORMATION
  Report Type: 
  Country: None (occurrence: None)
  Receive Date: 20120306
  Receipt Date: 20120227
  Transmission Date: 20120608
  Serious: Yes (Other)
  Sender: FDA-Public Use
  Company Number: AUR-APL-2012-00669

PATIENT
  Age: 52 Year
  Sex: Female

DRUGS (5)
  1. SYNTHROID [Concomitant]
  2. CYTOMEL [Concomitant]
  3. CIPROFLOXACIN [Suspect]
     Indication: UPPER RESPIRATORY TRACT INFECTION
     Dosage: 2 DOSAGE FORMS (1 IDOSAGE FORMS, 2 IN 1 D), ORAL
     Route: 048
     Dates: start: 20120117, end: 20120121
  4. CIPROFLOXACIN [Suspect]
     Indication: PNEUMONIA PRIMARY ATYPICAL
     Dosage: 2 DOSAGE FORMS (1 IDOSAGE FORMS, 2 IN 1 D), ORAL
     Route: 048
     Dates: start: 20120117, end: 20120121
  5. EPIPEN [Concomitant]

REACTIONS (5)
  - ABDOMINAL DISTENSION [None]
  - FLATULENCE [None]
  - ABDOMINAL PAIN UPPER [None]
  - PRODUCT SUBSTITUTION ISSUE [None]
  - CONSTIPATION [None]
